FAERS Safety Report 8127164-0 (Version None)
Quarter: 2012Q1

REPORT INFORMATION
  Report Type: 
  Country: None (occurrence: None)
  Receive Date: 20120210
  Receipt Date: 20120207
  Transmission Date: 20120608
  Serious: Yes (Other)
  Sender: FDA-Public Use
  Company Number: US-PFIZER INC-2012033302

PATIENT
  Sex: Female

DRUGS (8)
  1. TRAMADOL [Concomitant]
     Dosage: UNK
  2. ARTHROTEC [Suspect]
     Dosage: UNK
  3. BACLOFEN [Concomitant]
     Dosage: UNK
  4. IMODIUM A-D [Concomitant]
     Dosage: UNK
  5. MELATONIN [Concomitant]
     Dosage: UNK
  6. IRON [Concomitant]
  7. AROMASIN [Concomitant]
     Dosage: UNK
  8. RANITIDINE [Concomitant]
     Dosage: UNK

REACTIONS (1)
  - NEOPLASM MALIGNANT [None]
